FAERS Safety Report 22295164 (Version 1)
Quarter: 2023Q2

REPORT INFORMATION
  Report Type: Spontaneous
  Country: US (occurrence: US)
  Receive Date: 20230508
  Receipt Date: 20230508
  Transmission Date: 20230721
  Serious: Yes (Hospitalization, Other)
  Sender: FDA-Public Use
  Company Number: US-TAKEDA-2023TUS042662

PATIENT
  Sex: Female
  Weight: 77 kg

DRUGS (4)
  1. LIALDA [Suspect]
     Active Substance: MESALAMINE
     Indication: Colitis ulcerative
     Dosage: 1.2 GRAM, QID
     Route: 065
     Dates: start: 201408
  2. VITAMIN C [Concomitant]
     Active Substance: ASCORBIC ACID
     Dosage: 1000 MILLIGRAM
     Route: 065
  3. IMODIUM [Concomitant]
     Active Substance: LOPERAMIDE HYDROCHLORIDE
     Indication: Diarrhoea
     Dosage: UNK
     Route: 065
  4. VITAMIN D3 [Concomitant]
     Active Substance: CHOLECALCIFEROL

REACTIONS (8)
  - Colitis ulcerative [Unknown]
  - Constipation [Unknown]
  - Illness [Unknown]
  - Stress [Unknown]
  - Influenza [Unknown]
  - Eating disorder [Unknown]
  - Drug ineffective [Unknown]
  - Diarrhoea [Unknown]
